FAERS Safety Report 4783662-9 (Version None)
Quarter: 2005Q3

REPORT INFORMATION
  Report Type: 
  Country: None (occurrence: None)
  Receive Date: 20050928
  Receipt Date: 20050913
  Transmission Date: 20060218
  Serious: Yes (Hospitalization)
  Sender: FDA-Public Use
  Company Number: TNZDE200500088

PATIENT
  Age: 60 Year
  Sex: Male

DRUGS (3)
  1. INNOHEP [Suspect]
     Dosage: 0.9 ML (0.9 ML, ONCE DAILY)
     Dates: start: 20050203
  2. CYCLOSPORINE [Concomitant]
  3. PREDNISONE [Concomitant]

REACTIONS (26)
  - ARTHRALGIA [None]
  - ARTHROPATHY [None]
  - BACK PAIN [None]
  - BLOOD ALBUMIN DECREASED [None]
  - BLOOD ALBUMIN INCREASED [None]
  - COAGULATION FACTOR XII LEVEL DECREASED [None]
  - CYSTITIS ESCHERICHIA [None]
  - CYSTITIS KLEBSIELLA [None]
  - FEMORAL NERVE PALSY [None]
  - FLUID RETENTION [None]
  - GALLBLADDER POLYP [None]
  - GASTRITIS EROSIVE [None]
  - GENERALISED OEDEMA [None]
  - HAEMARTHROSIS [None]
  - HAEMODIALYSIS [None]
  - HAEMOGLOBIN DECREASED [None]
  - JOINT EFFUSION [None]
  - LUMBOSACRAL PLEXUS LESION [None]
  - PERITONEAL LESION [None]
  - PLEURAL EFFUSION [None]
  - PULMONARY CONGESTION [None]
  - RENAL FAILURE ACUTE [None]
  - RETROPERITONEAL HAEMATOMA [None]
  - RHABDOMYOLYSIS [None]
  - SPINAL CORD PARALYSIS [None]
  - SPINAL DISORDER [None]
